FAERS Safety Report 7884149-7 (Version None)
Quarter: 2011Q4

REPORT INFORMATION
  Report Type: 
  Country: None (occurrence: None)
  Receive Date: 20111102
  Receipt Date: 20111027
  Transmission Date: 20120403
  Serious: Yes (Hospitalization)
  Sender: FDA-Public Use
  Company Number: US-GLAXOSMITHKLINE-A0951413A

PATIENT
  Sex: Female

DRUGS (3)
  1. UNKNOWN [Concomitant]
  2. VITAMIN AND MINERAL PRENATAL SUPPLEMENT W/ FOLIC ACID CAP [Concomitant]
  3. LAMICTAL [Suspect]
     Indication: AFFECTIVE DISORDER
     Dosage: 25MG PER DAY
     Route: 048
     Dates: start: 20111018, end: 20111025

REACTIONS (3)
  - MATERNAL EXPOSURE DURING PREGNANCY [None]
  - SUICIDAL IDEATION [None]
  - RASH [None]
